FAERS Safety Report 9265298 (Version 1)
Quarter: 2013Q2

REPORT INFORMATION
  Report Type: Spontaneous
  Country: CA (occurrence: CA)
  Receive Date: 20130501
  Receipt Date: 20130501
  Transmission Date: 20140414
  Serious: Yes (Other)
  Sender: FDA-Public Use
  Company Number: CA-PFIZER INC-2013135631

PATIENT
  Sex: Male

DRUGS (1)
  1. CHAMPIX [Suspect]
     Dosage: 0.5 MG, UNK

REACTIONS (18)
  - Tunnel vision [Unknown]
  - Hallucination, auditory [Unknown]
  - Chest pain [Unknown]
  - Balance disorder [Not Recovered/Not Resolved]
  - Feeling abnormal [Not Recovered/Not Resolved]
  - Diarrhoea [Unknown]
  - Visual impairment [Unknown]
  - Disturbance in attention [Unknown]
  - Restlessness [Unknown]
  - Mood altered [Unknown]
  - Anxiety [Unknown]
  - Headache [Unknown]
  - Nausea [Unknown]
  - Dysgeusia [Unknown]
  - Fatigue [Unknown]
  - Flatulence [Unknown]
  - Amnesia [Unknown]
  - Abdominal discomfort [Unknown]
